FAERS Safety Report 9042793 (Version 3)
Quarter: 2013Q2

REPORT INFORMATION
  Report Type: Report from Study
  Country: DE (occurrence: DE)
  Receive Date: 20130129
  Receipt Date: 20130613
  Transmission Date: 20140414
  Serious: Yes (Life-Threatening, Hospitalization, Other)
  Sender: FDA-Public Use
  Company Number: DE-ABBOTT-13P-062-1040916-00

PATIENT
  Age: 36 Year
  Sex: Male
  Weight: 66 kg

DRUGS (4)
  1. HUMIRA [Suspect]
     Indication: CROHN^S DISEASE
     Route: 058
     Dates: start: 20120309
  2. HUMIRA [Suspect]
     Route: 058
     Dates: start: 2012, end: 20130101
  3. AZATHIOPRINE [Suspect]
     Indication: PRODUCT USED FOR UNKNOWN INDICATION
     Dates: start: 20110115, end: 20120315
  4. MTX [Suspect]
     Indication: PRODUCT USED FOR UNKNOWN INDICATION
     Dates: start: 20080615, end: 20110715

REACTIONS (5)
  - Barrett^s oesophagus [Not Recovered/Not Resolved]
  - Oesophageal neoplasm [Not Recovered/Not Resolved]
  - Oesophageal carcinoma stage 0 [Recovered/Resolved]
  - Intestinal stenosis [Unknown]
  - Intestinal fistula [Unknown]
